FAERS Safety Report 6786200-4 (Version None)
Quarter: 2010Q2

REPORT INFORMATION
  Report Type: 
  Country: None (occurrence: None)
  Receive Date: 20100621
  Receipt Date: 20100621
  Transmission Date: 20101027
  Serious: Yes (Disabling)
  Sender: FDA-Public Use
  Company Number: None

PATIENT
  Age: 70 Year
  Sex: Male
  Weight: 98 kg

DRUGS (21)
  1. FRAGMIN [Suspect]
  2. INVANZ [Concomitant]
  3. VANCOMYCIN HCL [Concomitant]
  4. DILAUDID [Concomitant]
  5. PHENERGAN [Concomitant]
  6. LORTAB [Concomitant]
  7. MAALOX PLUS [Concomitant]
  8. MORPHINE [Concomitant]
  9. TYLENOL EXTRA STR [Concomitant]
  10. ... [Concomitant]
  11. ZOFRAN [Concomitant]
  12. DEMEROL [Concomitant]
  13. PLASMA-LYTE 56 AND DEXTROSE 5% IN PLASTIC CONTAINER [Concomitant]
  14. PREVACID [Concomitant]
  15. VENTOLIN [Concomitant]
  16. TOPROL-XL [Concomitant]
  17. TESSALON [Concomitant]
  18. ASPIRIN [Concomitant]
  19. MULTIPLE VITAMIN [Concomitant]
  20. FLOMAX [Concomitant]
  21. LOPRESSOR [Concomitant]

REACTIONS (3)
  - LUNG NEOPLASM [None]
  - POST PROCEDURAL COMPLICATION [None]
  - SUBCUTANEOUS EMPHYSEMA [None]
